FAERS Safety Report 25763387 (Version 2)
Quarter: 2025Q3

REPORT INFORMATION
  Report Type: Spontaneous
  Country: AU (occurrence: AU)
  Receive Date: 20250905
  Receipt Date: 20250926
  Transmission Date: 20251020
  Serious: No
  Sender: CELLTRION
  Company Number: AU-CELLTRION INC.-2025AU031056

PATIENT

DRUGS (2)
  1. STEQEYMA [Suspect]
     Active Substance: USTEKINUMAB-STBA
     Indication: Crohn^s disease
     Route: 058
     Dates: start: 20250827
  2. STEQEYMA [Suspect]
     Active Substance: USTEKINUMAB-STBA
     Dosage: 90 MG EVERY 4 WEEKS
     Route: 058

REACTIONS (2)
  - Extra dose administered [Recovered/Resolved]
  - Product dose confusion [Recovered/Resolved]

NARRATIVE: CASE EVENT DATE: 20250827
